FAERS Safety Report 21476874 (Version 1)
Quarter: 2022Q4

REPORT INFORMATION
  Report Type: Spontaneous
  Country: US (occurrence: None)
  Receive Date: 20221018
  Receipt Date: 20221018
  Transmission Date: 20230113
  Serious: Yes (Hospitalization)
  Sender: FDA-Public Use
  Company Number: None

PATIENT
  Age: 69 Year
  Sex: Male
  Weight: 84 kg

DRUGS (1)
  1. SACUBITRIL\VALSARTAN [Suspect]
     Active Substance: SACUBITRIL\VALSARTAN
     Indication: Cardiac failure congestive
     Dosage: OTHER QUANTITY : DOSE: 97/103 MG;?FREQUENCY : TWICE A DAY;?
     Route: 048
     Dates: start: 20200204, end: 20210504

REACTIONS (3)
  - Prescribed underdose [None]
  - Blood potassium increased [None]
  - Therapy cessation [None]

NARRATIVE: CASE EVENT DATE: 20210518
